FAERS Safety Report 5372395-6 (Version None)
Quarter: 2007Q2

REPORT INFORMATION
  Report Type: 
  Country: None (occurrence: None)
  Receive Date: 20070627
  Receipt Date: 20070423
  Transmission Date: 20071010
  Serious: Yes (Other)
  Sender: FDA-Public Use
  Company Number: US-BRISTOL-MYERS SQUIBB COMPANY-13757216

PATIENT
  Sex: Male

DRUGS (2)
  1. SPRYCEL [Suspect]
  2. HYDREA [Concomitant]

REACTIONS (4)
  - CARDIAC DISORDER [None]
  - PULMONARY OEDEMA [None]
  - RENAL DISORDER [None]
  - WHITE BLOOD CELL COUNT ABNORMAL [None]
